FAERS Safety Report 4821791-1 (Version None)
Quarter: 2005Q4

REPORT INFORMATION
  Report Type: 
  Country: None (occurrence: None)
  Receive Date: 20051107
  Receipt Date: 20050929
  Transmission Date: 20060501
  Serious: Yes (Hospitalization)
  Sender: FDA-Public Use
  Company Number: CA-AMGEN-US152653

PATIENT
  Sex: Male

DRUGS (7)
  1. DARBEPOETIN ALFA [Suspect]
     Indication: DIALYSIS
     Route: 058
     Dates: start: 20050727
  2. PRAVACHOL [Concomitant]
     Route: 048
     Dates: start: 20050502
  3. LOSEC [Concomitant]
     Route: 048
     Dates: start: 20050704
  4. EMPRACET [Concomitant]
     Route: 048
     Dates: start: 20050704
  5. ALTACE [Concomitant]
     Route: 048
     Dates: start: 20050822
  6. QUININE [Concomitant]
     Dates: start: 20041012
  7. COUMADIN [Concomitant]
     Route: 048
     Dates: start: 20050920

REACTIONS (1)
  - VENA CAVA THROMBOSIS [None]
